FAERS Safety Report 16536714 (Version 1)
Quarter: 2019Q3

REPORT INFORMATION
  Report Type: Spontaneous
  Country: US (occurrence: US)
  Receive Date: 20190706
  Receipt Date: 20190706
  Transmission Date: 20191004
  Serious: No
  Sender: FDA-Public Use
  Company Number: US-TEVA-2019-US-1072557

PATIENT
  Sex: Female

DRUGS (2)
  1. CLONAZEPAM ACTAVIS [Suspect]
     Active Substance: CLONAZEPAM
     Indication: ANXIETY
     Dosage: ONCE IN THE MORNING AND ONCE AT NIGHT; ROUND, YELLOW, SCORED
     Route: 065
  2. CLONAZEPAM ACTAVIS [Suspect]
     Active Substance: CLONAZEPAM
     Indication: PANIC DISORDER

REACTIONS (7)
  - Headache [Unknown]
  - Therapeutic product effect decreased [Unknown]
  - Swelling [Unknown]
  - Oral pain [Unknown]
  - Arthralgia [Unknown]
  - Anxiety [Unknown]
  - Tremor [Unknown]
